FAERS Safety Report 6184783-9 (Version None)
Quarter: 2009Q2

REPORT INFORMATION
  Report Type: 
  Country: None (occurrence: None)
  Receive Date: 20090508
  Receipt Date: 20090430
  Transmission Date: 20091009
  Serious: Yes (Hospitalization)
  Sender: FDA-Public Use
  Company Number: FR-ABBOTT-01P-056-0104611-00

PATIENT
  Sex: Female
  Weight: 3.2 kg

DRUGS (10)
  1. NORVIR [Suspect]
     Indication: DRUG EXPOSURE DURING PREGNANCY
     Route: 064
  2. SAQUINAVIR [Suspect]
     Indication: DRUG EXPOSURE DURING PREGNANCY
     Route: 064
  3. DIDANOSINE [Suspect]
     Indication: DRUG EXPOSURE DURING PREGNANCY
     Route: 064
  4. ZIDOVUDINE [Suspect]
     Indication: DRUG EXPOSURE DURING PREGNANCY
     Route: 064
  5. NEVIRAPINE [Suspect]
     Indication: DRUG EXPOSURE DURING PREGNANCY
     Route: 064
  6. NEVIRAPINE [Suspect]
     Route: 048
     Dates: start: 19990913
  7. ZIDOVUDINE [Concomitant]
     Indication: DRUG USE FOR UNKNOWN INDICATION
  8. VIRAMUNE [Concomitant]
     Indication: DRUG USE FOR UNKNOWN INDICATION
     Dates: start: 19990913, end: 19990913
  9. FOLIC ACID [Concomitant]
     Indication: DRUG USE FOR UNKNOWN INDICATION
  10. ERGOCALCIFEROL [Concomitant]
     Indication: DRUG USE FOR UNKNOWN INDICATION

REACTIONS (20)
  - ABDOMINAL DISTENSION [None]
  - ABDOMINAL PAIN [None]
  - ABNORMAL FAECES [None]
  - ANAEMIA [None]
  - BLOOD CHOLESTEROL INCREASED [None]
  - BLOOD LACTIC ACID INCREASED [None]
  - DRUG EXPOSURE DURING PREGNANCY [None]
  - FLATULENCE [None]
  - FOOT DEFORMITY [None]
  - HEPATOMEGALY [None]
  - HYPERTRIGLYCERIDAEMIA [None]
  - HYPOTONIA [None]
  - MALAISE [None]
  - METABOLIC FUNCTION TEST ABNORMAL [None]
  - NEUTROPENIA [None]
  - OBESITY [None]
  - PLATELET COUNT INCREASED [None]
  - SUPRAVENTRICULAR TACHYCARDIA [None]
  - TACHYCARDIA [None]
  - UNEVALUABLE EVENT [None]
